FAERS Safety Report 17626696 (Version 1)
Quarter: 2020Q2

REPORT INFORMATION
  Report Type: Report from Study
  Country: GB (occurrence: GB)
  Receive Date: 20200405
  Receipt Date: 20200405
  Transmission Date: 20200713
  Serious: Yes (Other)
  Sender: FDA-Public Use
  Company Number: GB-SAMSUNG BIOEPIS-SB-2020-09599

PATIENT
  Age: 50 Year
  Sex: Female

DRUGS (1)
  1. IMRALDI [Suspect]
     Active Substance: ADALIMUMAB
     Indication: CROHN^S DISEASE
     Route: 058

REACTIONS (6)
  - Bronchitis [Not Recovered/Not Resolved]
  - Ocular hyperaemia [Unknown]
  - Lower respiratory tract infection [Unknown]
  - Fall [Unknown]
  - Contusion [Unknown]
  - Immunosuppression [Unknown]
